FAERS Safety Report 7511165-7 (Version None)
Quarter: 2011Q2

REPORT INFORMATION
  Report Type: 
  Country: None (occurrence: None)
  Receive Date: 20110531
  Receipt Date: 20091122
  Transmission Date: 20111010
  Serious: Yes (Death, Hospitalization, Other)
  Sender: FDA-Public Use
  Company Number: US-BAYER-200940303NA

PATIENT
  Age: 44 Year
  Sex: Male
  Weight: 105.67 kg

DRUGS (27)
  1. ACETAMINOPHEN [Concomitant]
     Dosage: UNK
     Dates: start: 20010713, end: 20010714
  2. METOPROLOL TARTRATE [Concomitant]
     Dosage: UNK
     Dates: start: 20021219, end: 20021220
  3. COLESTIPOL HYDROCHLORIDE [Concomitant]
     Dosage: 16 G, BID
     Route: 048
  4. NITROGLYCERIN [Concomitant]
     Dosage: UNK UNK, PRN
     Route: 060
  5. VERSED [Concomitant]
     Dosage: UNK
     Route: 042
     Dates: start: 20020314, end: 20020314
  6. SOLU-MEDROL [Concomitant]
     Dosage: 150 MG, UNK
     Route: 042
     Dates: start: 20020314, end: 20020314
  7. TRASYLOL [Suspect]
     Indication: CORONARY ARTERY BYPASS
     Dosage: 200ML BOLUS FOLLOWED BY 50ML/HR INFUSION FOR TOTAL OF 500ML APPROX.
     Route: 042
     Dates: start: 20020314, end: 20020314
  8. ACETYLSALICYLIC ACID SRT [Concomitant]
     Dosage: 325 MG, QD
     Dates: start: 20010707, end: 20020708
  9. ATENOLOL [Concomitant]
     Dosage: 50 MG, UNK
     Route: 048
     Dates: start: 20011223, end: 20021224
  10. VIOXX [Concomitant]
     Dosage: 25 MG, UNK
     Route: 048
  11. LISINOPRIL [Concomitant]
     Dosage: 5 MG, QOD
     Route: 048
  12. ZESTRIL [Concomitant]
     Dosage: 5 MG, UNK
     Route: 048
  13. HEPARIN [Concomitant]
     Dosage: UNK
     Route: 042
     Dates: start: 20020314, end: 20020314
  14. LASIX [Concomitant]
     Dosage: 60 MG, UNK
     Route: 042
     Dates: start: 20020314, end: 20020314
  15. INTEGRILIN [Concomitant]
  16. EPINEPHRINE [Concomitant]
     Dosage: UNK
     Route: 042
     Dates: start: 20020314
  17. INSULIN [Concomitant]
     Dosage: 40 U, PER HOUR
     Dates: start: 20020314, end: 20020314
  18. LOVENOX [Concomitant]
     Dosage: 100 MG, UNK
     Route: 058
  19. LIPITOR [Concomitant]
     Dosage: 80 MG, QD
     Route: 048
  20. DOPAMINE HCL [Concomitant]
     Dosage: UNK
     Route: 042
     Dates: start: 20020314, end: 20020314
  21. ANECTINE [Concomitant]
     Dosage: UNK
     Route: 042
     Dates: start: 20020314
  22. PENTOTHAL [Concomitant]
     Dosage: 1500 MG, UNK
     Dates: start: 20020314, end: 20020314
  23. HEPARIN [Concomitant]
     Dosage: UNK
  24. ISOSORBIDE DINITRATE [Concomitant]
     Dosage: 120 MG, QD
     Route: 048
  25. FENTANYL [Concomitant]
     Dosage: UNK
     Route: 042
     Dates: start: 20020314, end: 20020314
  26. CORDARONE [Concomitant]
     Dosage: 33 MG, UNK
     Dates: start: 20020314, end: 20020314
  27. LISINOPRIL [Concomitant]
     Dosage: UNK
     Dates: start: 20011223, end: 20011224

REACTIONS (13)
  - UNEVALUABLE EVENT [None]
  - ANHEDONIA [None]
  - RENAL FAILURE [None]
  - RENAL IMPAIRMENT [None]
  - RENAL INJURY [None]
  - MULTI-ORGAN FAILURE [None]
  - STRESS [None]
  - EMOTIONAL DISTRESS [None]
  - PAIN [None]
  - FEAR [None]
  - DEATH [None]
  - INJURY [None]
  - ANXIETY [None]
